FAERS Safety Report 7541161-5 (Version None)
Quarter: 2011Q2

REPORT INFORMATION
  Report Type: 
  Country: None (occurrence: None)
  Receive Date: 20110610
  Receipt Date: 20110608
  Transmission Date: 20111010
  Serious: Yes (Hospitalization)
  Sender: FDA-Public Use
  Company Number: US-ABBOTT-11P-163-0726257-00

PATIENT
  Age: 53 Year
  Sex: Male
  Weight: 68.554 kg

DRUGS (9)
  1. TEMAZEPAM [Suspect]
     Indication: INSOMNIA
     Dosage: DAILY
  2. PREDNISONE [Suspect]
     Indication: CROHN'S DISEASE
     Dosage: 20 MG DAILY
  3. ACIPHEX [Suspect]
     Indication: GASTROOESOPHAGEAL REFLUX DISEASE
     Dosage: DAILY
  4. LITHIUM CARBONATE [Suspect]
     Indication: BIPOLAR DISORDER
  5. THYROID TAB [Suspect]
     Indication: THYROID DISORDER
  6. HUMIRA [Suspect]
     Indication: CROHN'S DISEASE
     Route: 058
     Dates: start: 20110301
  7. DEPAKOTE [Suspect]
     Indication: BIPOLAR DISORDER
  8. LISINOPRIL [Suspect]
     Indication: HYPERTENSION
  9. CA++ [Suspect]
     Indication: VITAMIN SUPPLEMENTATION

REACTIONS (3)
  - TRANSIENT ISCHAEMIC ATTACK [None]
  - DYSARTHRIA [None]
  - VISUAL IMPAIRMENT [None]
